FAERS Safety Report 5949058-9 (Version None)
Quarter: 2008Q4

REPORT INFORMATION
  Report Type: 
  Country: None (occurrence: None)
  Receive Date: 20081111
  Receipt Date: 20081104
  Transmission Date: 20090506
  Serious: Yes (Other)
  Sender: FDA-Public Use
  Company Number: US-ELI_LILLY_AND_COMPANY-US200808006232

PATIENT
  Sex: Male
  Weight: 117.46 kg

DRUGS (7)
  1. BYETTA [Suspect]
     Indication: TYPE 2 DIABETES MELLITUS
     Dosage: 5 UG, 2/D
     Route: 058
     Dates: start: 20080630, end: 20080730
  2. BYETTA [Suspect]
     Dosage: 10 UG, 2/D
     Route: 058
     Dates: start: 20080730, end: 20080826
  3. LIPITOR [Concomitant]
     Indication: HYPERLIPIDAEMIA
     Dosage: 10 MG, UNKNOWN
     Route: 065
     Dates: start: 20080601
  4. TRICOR [Concomitant]
     Dosage: 10 MG, UNKNOWN
     Route: 065
  5. METFORMIN HCL [Concomitant]
     Dosage: UNK, UNKNOWN
     Route: 065
  6. PREVACID [Concomitant]
     Dosage: UNK, UNKNOWN
     Route: 065
  7. SKELAXIN [Concomitant]
     Dosage: UNK, UNKNOWN
     Route: 065

REACTIONS (2)
  - PANCREATITIS [None]
  - WEIGHT DECREASED [None]
